FAERS Safety Report 14512737 (Version 4)
Quarter: 2018Q2

REPORT INFORMATION
  Report Type: Report from Study
  Country: PL (occurrence: PL)
  Receive Date: 20180209
  Receipt Date: 20180511
  Transmission Date: 20180711
  Serious: Yes (Hospitalization, Other)
  Sender: FDA-Public Use
  Company Number: PL-EXELIXIS-XL18418012292

PATIENT
  Age: 23 Year
  Sex: Female
  Weight: 50 kg

DRUGS (13)
  1. BLINDED XL184 [Suspect]
     Active Substance: CABOZANTINIB
     Indication: MEDULLARY THYROID CANCER
     Dosage: UNK
     Route: 048
     Dates: start: 20170810
  2. BLINDED XL184 [Suspect]
     Active Substance: CABOZANTINIB
     Dosage: DOSE REDUCTION
     Route: 048
     Dates: start: 20171004, end: 20180131
  3. AMITRIPTYLINUM [Concomitant]
  4. BLINDED XL184 [Suspect]
     Active Substance: CABOZANTINIB
     Dosage: DOSE REDUCTION
     Route: 048
     Dates: start: 20171004, end: 20180131
  5. BLINDED XL184 [Suspect]
     Active Substance: CABOZANTINIB
     Dosage: DOSE REDUCTION
     Route: 048
     Dates: start: 20180305, end: 20180322
  6. LETROX [Concomitant]
     Active Substance: LEVOTHYROXINE SODIUM
  7. MAGNE B6 [Concomitant]
     Active Substance: MAGNESIUM\PYRIDOXINE
  8. BLINDED XL184 [Suspect]
     Active Substance: CABOZANTINIB
     Indication: MEDULLARY THYROID CANCER
     Dosage: UNK
     Route: 048
     Dates: start: 20170810
  9. BLINDED XL184 [Suspect]
     Active Substance: CABOZANTINIB
     Dosage: DOSE REDUCTION
     Route: 048
     Dates: start: 20180305, end: 20180322
  10. HYDROCORTISON [Concomitant]
     Active Substance: HYDROCORTISONE
  11. CORTINEFF [Concomitant]
     Active Substance: FLUDROCORTISONE
  12. CALPEROS [Concomitant]
     Active Substance: CALCIUM CARBONATE
  13. ALFADIOL [Concomitant]
     Active Substance: ALFACALCIDOL

REACTIONS (2)
  - Pneumothorax spontaneous [Recovering/Resolving]
  - Pneumothorax spontaneous [Recovered/Resolved]

NARRATIVE: CASE EVENT DATE: 20180201
